FAERS Safety Report 9846899 (Version 1)
Quarter: 2014Q1

REPORT INFORMATION
  Report Type: Spontaneous
  Country: US (occurrence: US)
  Receive Date: 20140127
  Receipt Date: 20140127
  Transmission Date: 20141002
  Serious: Yes (Death)
  Sender: FDA-Public Use
  Company Number: US-PFIZER INC-2014022477

PATIENT
  Age: 67 Year
  Sex: Female

DRUGS (7)
  1. XALKORI [Suspect]
     Indication: LUNG NEOPLASM MALIGNANT
     Dosage: 250 MG, UNK
     Dates: start: 20140102
  2. ASPIRIN [Concomitant]
     Dosage: UNK
  3. DEXAMETHASONE [Concomitant]
     Dosage: UNK
  4. HYDROCODONE W/ACETAMINOPHEN [Concomitant]
     Dosage: UNK
  5. NEXIUM [Concomitant]
     Dosage: UNK
  6. PROCARDIA XL [Concomitant]
     Dosage: UNK
  7. SPIRONOLACTONE [Concomitant]
     Dosage: UNK

REACTIONS (1)
  - Death [Fatal]
